FAERS Safety Report 17145684 (Version 1)
Quarter: 2019Q4

REPORT INFORMATION
  Report Type: Spontaneous
  Country: LT (occurrence: LT)
  Receive Date: 20191212
  Receipt Date: 20191212
  Transmission Date: 20200122
  Serious: Yes (Death, Hospitalization, Other)
  Sender: FDA-Public Use
  Company Number: LT-ABBVIE-19K-234-3158845-00

PATIENT
  Age: 73 Year
  Sex: Male

DRUGS (3)
  1. METFORMIN [Concomitant]
     Active Substance: METFORMIN HYDROCHLORIDE
     Indication: CROHN^S DISEASE
  2. METOPROLOLUM [Concomitant]
     Indication: HYPERTENSION
  3. IMBRUVICA [Suspect]
     Active Substance: IBRUTINIB
     Indication: MANTLE CELL LYMPHOMA
     Route: 048
     Dates: start: 201907, end: 20190830

REACTIONS (6)
  - Splenic rupture [Unknown]
  - Epistaxis [Unknown]
  - Hepatitis acute [Fatal]
  - Mantle cell lymphoma [Unknown]
  - Contusion [Unknown]
  - Thrombocytopenia [Unknown]

NARRATIVE: CASE EVENT DATE: 201908
